FAERS Safety Report 8952471 (Version 2)
Quarter: 2013Q4

REPORT INFORMATION
  Report Type: Spontaneous
  Country: US (occurrence: US)
  Receive Date: 20121205
  Receipt Date: 20131226
  Transmission Date: 20140711
  Serious: Yes (Other)
  Sender: FDA-Public Use
  Company Number: US-BAYER-2012-127083

PATIENT
  Age: 22 Year
  Sex: Female

DRUGS (9)
  1. YAZ [Suspect]
  2. YASMIN [Suspect]
  3. OCELLA [Suspect]
  4. LISINOPRIL [Concomitant]
  5. PRILOSEC [Concomitant]
  6. METFORMIN [Concomitant]
  7. VICTOZA [Concomitant]
  8. FOLIC ACID [Concomitant]
  9. ZYRTEC [Concomitant]

REACTIONS (9)
  - Cholecystitis chronic [None]
  - Gallbladder injury [None]
  - Pain [None]
  - Fear of disease [None]
  - Injury [None]
  - Emotional distress [None]
  - Anhedonia [None]
  - Psychological trauma [None]
  - Pain [None]
